FAERS Safety Report 8333802-X (Version None)
Quarter: 2012Q2

REPORT INFORMATION
  Report Type: 
  Country: None (occurrence: None)
  Receive Date: 20120503
  Receipt Date: 20120427
  Transmission Date: 20120825
  Serious: Yes (Life-Threatening, Hospitalization)
  Sender: FDA-Public Use
  Company Number: US-BAYER-2012-005396

PATIENT
  Age: 22 Year
  Sex: Female
  Weight: 61.224 kg

DRUGS (5)
  1. VITAMIN C [Concomitant]
  2. MOTRIN [Concomitant]
     Dosage: UNK UNK, PRN
  3. YAZ [Suspect]
     Indication: ACNE
  4. YAZ [Suspect]
     Indication: CONTRACEPTION
     Dosage: UNK
     Dates: start: 20071101, end: 20091219
  5. ACETAMINOPHEN W/ PROPOXYPHENE HCL [Concomitant]

REACTIONS (5)
  - CHOLECYSTITIS CHRONIC [None]
  - PAIN [None]
  - PANCREATITIS [None]
  - ANHEDONIA [None]
  - ANXIETY [None]
